FAERS Safety Report 15713870 (Version 1)
Quarter: 2018Q4

REPORT INFORMATION
  Report Type: Spontaneous
  Country: US (occurrence: US)
  Receive Date: 20181212
  Receipt Date: 20181212
  Transmission Date: 20190205
  Serious: No
  Sender: FDA-Public Use
  Company Number: US-SHIRE-US201847890

PATIENT
  Age: 56 Year
  Sex: Male
  Weight: 77.98 kg

DRUGS (1)
  1. XIIDRA [Suspect]
     Active Substance: LIFITEGRAST
     Indication: DRY EYE
     Dosage: 2 GTT, 2 OR 3 TIMES DAILY AS NEEDED
     Route: 047
     Dates: start: 20180605, end: 20180914

REACTIONS (6)
  - Eye disorder [Not Recovered/Not Resolved]
  - Dysgeusia [Recovered/Resolved]
  - Instillation site reaction [Unknown]
  - Inability to afford medication [Not Recovered/Not Resolved]
  - Vision blurred [Recovered/Resolved]
  - Sinusitis [Not Recovered/Not Resolved]

NARRATIVE: CASE EVENT DATE: 2018
